FAERS Safety Report 10337586 (Version 1)
Quarter: 2014Q3

REPORT INFORMATION
  Report Type: Spontaneous
  Country: US (occurrence: US)
  Receive Date: 20140724
  Receipt Date: 20140724
  Transmission Date: 20150326
  Serious: No
  Sender: FDA-Public Use
  Company Number: US-009507513-1407USA007682

PATIENT
  Sex: Female

DRUGS (1)
  1. DULERA [Suspect]
     Active Substance: FORMOTEROL FUMARATE DIHYDRATE\MOMETASONE FUROATE
     Dosage: DOSE 200/5MCG; FREQUENCY UNSPECIFIED
     Route: 055
     Dates: start: 201405

REACTIONS (3)
  - Candida infection [Not Recovered/Not Resolved]
  - Wrong technique in drug usage process [Unknown]
  - Dental care [Unknown]

NARRATIVE: CASE EVENT DATE: 2014
